FAERS Safety Report 9741420 (Version 4)
Quarter: 2014Q2

REPORT INFORMATION
  Report Type: Spontaneous
  Country: JP (occurrence: JP)
  Receive Date: 20131209
  Receipt Date: 20140508
  Transmission Date: 20141212
  Serious: Yes (Other)
  Sender: FDA-Public Use
  Company Number: PHHY2013JP142804

PATIENT
  Age: 35 Year
  Sex: Female

DRUGS (3)
  1. NEORAL [Suspect]
     Indication: PSORIATIC ARTHROPATHY
     Route: 048
     Dates: start: 200806
  2. NEORAL [Suspect]
     Dosage: 1.8-2.7 MG/KG/DAY
     Route: 048
     Dates: start: 200810
  3. INFLIXIMAB [Suspect]
     Dates: start: 201010

REACTIONS (3)
  - Abortion [Unknown]
  - Maternal exposure during pregnancy [Unknown]
  - Therapeutic response decreased [Unknown]
